FAERS Safety Report 6977121-2 (Version None)
Quarter: 2010Q3

REPORT INFORMATION
  Report Type: 
  Country: None (occurrence: None)
  Receive Date: 20100910
  Receipt Date: 20100901
  Transmission Date: 20110219
  Serious: Yes (Other)
  Sender: FDA-Public Use
  Company Number: FR-WYE-G06618010

PATIENT
  Sex: Male

DRUGS (1)
  1. REFACTO [Suspect]
     Indication: FACTOR VIII DEFICIENCY
     Dosage: 500 IU ON 05-MAY-2010, THEN, FROM 06-JUN-2010, PROHYLAXIS WITH 500 IU PER WEEK
     Route: 042
     Dates: start: 20100505

REACTIONS (2)
  - FACTOR VIII INHIBITION [None]
  - HAEMATOMA [None]
